FAERS Safety Report 4710647-0 (Version None)
Quarter: 2005Q3

REPORT INFORMATION
  Report Type: 
  Country: None (occurrence: None)
  Receive Date: 20050707
  Receipt Date: 20050617
  Transmission Date: 20060218
  Serious: Yes (Disabling)
  Sender: FDA-Public Use
  Company Number: JP_050606863

PATIENT
  Age: 66 Year
  Sex: Male

DRUGS (3)
  1. PEMETREXED [Suspect]
     Indication: NON-SMALL CELL LUNG CANCER
     Dosage: 500 MG/M2 OTHER
     Route: 050
     Dates: start: 20050405, end: 20050509
  2. PANVITAN [Concomitant]
  3. HYDROXOCOBALAMIN ACETATE [Concomitant]

REACTIONS (1)
  - VOCAL CORD PARALYSIS [None]
